FAERS Safety Report 5224770-8 (Version None)
Quarter: 2007Q1

REPORT INFORMATION
  Report Type: 
  Country: None (occurrence: None)
  Receive Date: 20070129
  Receipt Date: 20070129
  Transmission Date: 20070707
  Serious: Yes (Hospitalization, Other)
  Sender: FDA-Public Use
  Company Number: None

PATIENT
  Age: 16 Year
  Sex: Female
  Weight: 53.978 kg

DRUGS (1)
  1. LARIAM [Suspect]
     Indication: MALARIA PROPHYLAXIS
     Dosage: 1 TABLET ONCE DAILY ORALLY
     Route: 048
     Dates: start: 19941201

REACTIONS (3)
  - MENSTRUATION IRREGULAR [None]
  - RASH [None]
  - WOUND SECRETION [None]
